FAERS Safety Report 4832499-0 (Version None)
Quarter: 2005Q4

REPORT INFORMATION
  Report Type: 
  Country: None (occurrence: None)
  Receive Date: 20051117
  Receipt Date: 20051117
  Transmission Date: 20060501
  Serious: Yes (Hospitalization)
  Sender: FDA-Public Use
  Company Number: None

PATIENT
  Sex: Female
  Weight: 67 kg

DRUGS (11)
  1. ESCITALOPRAM OXALATE [Suspect]
     Indication: DEPRESSION
     Dosage: 10 MG DAILY PO
     Route: 048
     Dates: start: 20050826, end: 20050830
  2. MAXZIDE [Suspect]
     Indication: HYPERTENSION
     Dosage: 25 MG DAILY PO
     Route: 048
  3. ASPIRIN [Concomitant]
  4. CELEBREX [Concomitant]
  5. FOLIC ACID [Concomitant]
  6. XALATAN [Concomitant]
  7. LEVOXYL [Concomitant]
  8. REGLAN [Concomitant]
  9. LESCOL XL [Concomitant]
  10. MULTI-VITAMINS [Concomitant]
  11. TOPROL-XL [Concomitant]

REACTIONS (5)
  - ASTHENIA [None]
  - CONFUSIONAL STATE [None]
  - HYPONATRAEMIA [None]
  - LETHARGY [None]
  - ORAL INTAKE REDUCED [None]
